FAERS Safety Report 10277501 (Version 1)
Quarter: 2014Q3

REPORT INFORMATION
  Report Type: Report from Study
  Country: US (occurrence: US)
  Receive Date: 20140703
  Receipt Date: 20140703
  Transmission Date: 20150326
  Serious: Yes (Death, Hospitalization, Other)
  Sender: FDA-Public Use
  Company Number: US-GILEAD-2014-0106992

PATIENT
  Sex: Male
  Weight: 139.77 kg

DRUGS (2)
  1. SOFOSBUVIR [Suspect]
     Active Substance: SOFOSBUVIR
     Indication: HEPATITIS C
     Dosage: 400 MG, QD
     Route: 048
     Dates: start: 20140225
  2. SIMEPREVIR [Suspect]
     Active Substance: SIMEPREVIR
     Indication: HEPATITIS C
     Dosage: 150 MG, QD
     Route: 048
     Dates: start: 20140225, end: 20140321

REACTIONS (8)
  - Generalised oedema [Fatal]
  - Toxicity to various agents [Unknown]
  - Renal failure [Unknown]
  - Nephropathy [Unknown]
  - Pneumonia [Unknown]
  - Dyspnoea [Fatal]
  - Shock [Unknown]
  - Hepatorenal syndrome [Unknown]

NARRATIVE: CASE EVENT DATE: 20140317
